FAERS Safety Report 10468765 (Version 1)
Quarter: 2014Q3

REPORT INFORMATION
  Report Type: Spontaneous
  Country: IN (occurrence: IN)
  Receive Date: 20140923
  Receipt Date: 20140923
  Transmission Date: 20150326
  Serious: Yes (Other)
  Sender: FDA-Public Use
  Company Number: IN-AUROBINDO-AUR-APL-2014-09991

PATIENT
  Age: 48 Year
  Sex: Female

DRUGS (1)
  1. AMLODIPINE [Suspect]
     Active Substance: AMLODIPINE BESYLATE
     Indication: HYPERTENSION
     Dosage: 10 MG, ONCE A DAY
     Route: 065

REACTIONS (10)
  - Pain in jaw [Recovered/Resolved]
  - Poor personal hygiene [Recovered/Resolved]
  - Parosmia [Recovered/Resolved]
  - Gingival bleeding [Recovered/Resolved]
  - Gingival hyperplasia [Recovered/Resolved]
  - Gingival discolouration [Recovered/Resolved]
  - Periodontitis [None]
  - Jaw disorder [Recovered/Resolved]
  - Gingival swelling [Recovered/Resolved]
  - Gingival erythema [Recovered/Resolved]
